FAERS Safety Report 25895999 (Version 1)
Quarter: 2025Q4

REPORT INFORMATION
  Report Type: Spontaneous
  Country: US (occurrence: None)
  Receive Date: 20251007
  Receipt Date: 20251007
  Transmission Date: 20260118
  Serious: Yes (Hospitalization)
  Sender: FDA-CTU
  Company Number: None

PATIENT
  Age: 65 Year
  Sex: Male

DRUGS (2)
  1. SILDENAFIL [Suspect]
     Active Substance: SILDENAFIL
     Dosage: FREQUENCY : AS NEEDED;?
     Route: 048
     Dates: start: 20240624
  2. SERTRALINE [Concomitant]
     Active Substance: SERTRALINE HYDROCHLORIDE

REACTIONS (2)
  - Tympanic membrane disorder [None]
  - Mass [None]

NARRATIVE: CASE EVENT DATE: 20251001
